FAERS Safety Report 5768901-X (Version None)
Quarter: 2008Q2

REPORT INFORMATION
  Report Type: 
  Country: None (occurrence: None)
  Receive Date: 20080612
  Receipt Date: 20080314
  Transmission Date: 20081010
  Serious: No
  Sender: FDA-Public Use
  Company Number: US-ABBOTT-08P-163-0442782-00

PATIENT
  Sex: Female
  Weight: 77.18 kg

DRUGS (4)
  1. HUMIRA [Suspect]
     Indication: PSORIATIC ARTHROPATHY
     Route: 058
     Dates: start: 20060101
  2. RISEDRONATE SODIUM [Concomitant]
     Indication: OSTEOPOROSIS
     Route: 048
     Dates: start: 20050101
  3. COSOPT [Concomitant]
     Indication: GLAUCOMA
     Route: 047
     Dates: start: 20030101
  4. LATANOPROST [Concomitant]
     Indication: GLAUCOMA
     Route: 047
     Dates: start: 20030101

REACTIONS (2)
  - OEDEMA PERIPHERAL [None]
  - PRURITUS [None]
